FAERS Safety Report 7008407-3 (Version None)
Quarter: 2010Q3

REPORT INFORMATION
  Report Type: 
  Country: None (occurrence: None)
  Receive Date: 20100922
  Receipt Date: 20100920
  Transmission Date: 20110219
  Serious: Yes (Hospitalization)
  Sender: FDA-Public Use
  Company Number: B0675207A

PATIENT
  Sex: Female

DRUGS (6)
  1. ZANTAC [Suspect]
     Indication: PREMEDICATION
     Dosage: 50MG SINGLE DOSE
     Route: 042
     Dates: start: 20100823, end: 20100823
  2. ZOFRAN [Suspect]
     Indication: PREMEDICATION
     Dosage: 8MG SINGLE DOSE
     Route: 042
     Dates: start: 20100823, end: 20100823
  3. PACLITAXEL [Suspect]
     Indication: BREAST CANCER
     Dosage: 300MG PER DAY
     Route: 042
     Dates: start: 20100823, end: 20100823
  4. CARBOPLATIN [Suspect]
     Indication: BREAST CANCER
     Dosage: 370MG PER DAY
     Route: 042
     Dates: start: 20100823, end: 20100823
  5. POLARAMINE [Suspect]
     Indication: PREMEDICATION
     Dosage: 5MG SINGLE DOSE
     Route: 042
     Dates: start: 20100823, end: 20100823
  6. METHYLPREDNISOLONE [Suspect]
     Indication: PREMEDICATION
     Dosage: 120MG SINGLE DOSE
     Route: 042
     Dates: start: 20100823, end: 20100823

REACTIONS (2)
  - ERYTHEMA [None]
  - PRURITUS [None]
